FAERS Safety Report 6089576-9 (Version None)
Quarter: 2009Q1

REPORT INFORMATION
  Report Type: 
  Country: None (occurrence: None)
  Receive Date: 20090224
  Receipt Date: 20090213
  Transmission Date: 20090719
  Serious: Yes (Other)
  Sender: FDA-Public Use
  Company Number: FR-ASTRAZENECA-2009CG00378

PATIENT
  Age: 50 Year
  Sex: Male

DRUGS (13)
  1. DIPRIVAN [Suspect]
     Indication: ANAESTHESIA
     Route: 042
  2. DIPRIVAN [Suspect]
     Indication: ARTHROSCOPY
     Route: 042
  3. RAPIFEN [Concomitant]
  4. MIDAZOLAM HCL [Concomitant]
  5. SEVORANE [Concomitant]
  6. PERFALGAN [Concomitant]
  7. MORPHINE [Concomitant]
  8. ACUPAN [Concomitant]
  9. PROFENID [Concomitant]
  10. VOLTARENE [Concomitant]
  11. LIPANTHYL [Concomitant]
  12. TAREG [Concomitant]
  13. DIALGIREX [Concomitant]

REACTIONS (1)
  - PANCREATITIS NECROTISING [None]
